FAERS Safety Report 5300516-X (Version None)
Quarter: 2007Q2

REPORT INFORMATION
  Report Type: 
  Country: None (occurrence: None)
  Receive Date: 20070413
  Receipt Date: 20070413
  Transmission Date: 20071010
  Serious: Yes (Other)
  Sender: FDA-Public Use
  Company Number: None

PATIENT
  Sex: Male
  Weight: 82.5 kg

DRUGS (1)
  1. GEMTUZUMAB OZOGAMICIN 5 MG AMERICAN HOME PRODUCTS [Suspect]
     Indication: ACUTE MYELOID LEUKAEMIA
     Dosage: 9 MG/M2/DAY -18.27 X1 IV DRIP
     Route: 041
     Dates: start: 20070331, end: 20070331

REACTIONS (1)
  - HEPATOTOXICITY [None]
